FAERS Safety Report 7123657-3 (Version None)
Quarter: 2010Q4

REPORT INFORMATION
  Report Type: 
  Country: None (occurrence: None)
  Receive Date: 20101125
  Receipt Date: 20101123
  Transmission Date: 20110411
  Serious: Yes (Hospitalization)
  Sender: FDA-Public Use
  Company Number: IT-PFIZER INC-2010156437

PATIENT
  Age: 64 Year
  Sex: Female

DRUGS (2)
  1. ZAVEDOS [Suspect]
     Indication: ACUTE MYELOID LEUKAEMIA
     Dosage: 15 MG, TOTAL
     Route: 042
     Dates: start: 20101010, end: 20101010
  2. ARACYTIN [Suspect]
     Indication: ACUTE MYELOID LEUKAEMIA
     Dosage: 2980 MG, 1X/DAY
     Route: 042
     Dates: start: 20101010, end: 20101015

REACTIONS (2)
  - APLASIA [None]
  - ESCHERICHIA SEPSIS [None]
